FAERS Safety Report 15842815 (Version 3)
Quarter: 2019Q2

REPORT INFORMATION
  Report Type: Spontaneous
  Country: US (occurrence: US)
  Receive Date: 20190118
  Receipt Date: 20190509
  Transmission Date: 20190711
  Serious: Yes (Other)
  Sender: FDA-Public Use
  Company Number: US-ASTRAZENECA-2018SF25983

PATIENT
  Sex: Male
  Weight: 127 kg

DRUGS (13)
  1. NEXIUM [Suspect]
     Active Substance: ESOMEPRAZOLE MAGNESIUM
     Route: 048
     Dates: start: 2004, end: 2015
  2. ZOCOR [Concomitant]
     Active Substance: SIMVASTATIN
  3. DIAZEPAM. [Concomitant]
     Active Substance: DIAZEPAM
  4. DEXILANT [Suspect]
     Active Substance: DEXLANSOPRAZOLE
     Dosage: 60 M
     Route: 065
     Dates: start: 2004, end: 2015
  5. PLAVIX [Concomitant]
     Active Substance: CLOPIDOGREL BISULFATE
  6. COREG [Concomitant]
     Active Substance: CARVEDILOL
  7. PROTONIX [Suspect]
     Active Substance: PANTOPRAZOLE SODIUM
     Route: 065
     Dates: start: 2004, end: 20150106
  8. PREVACID [Suspect]
     Active Substance: LANSOPRAZOLE
     Route: 065
     Dates: start: 2004, end: 201501
  9. PREVACID 24 HR [Suspect]
     Active Substance: LANSOPRAZOLE
     Route: 065
     Dates: start: 2004, end: 2015
  10. CRESTOR [Concomitant]
     Active Substance: ROSUVASTATIN CALCIUM
  11. PROTONIX [Suspect]
     Active Substance: PANTOPRAZOLE SODIUM
     Route: 065
     Dates: start: 2004, end: 2015
  12. PRILOSEC OTC [Suspect]
     Active Substance: OMEPRAZOLE MAGNESIUM
     Route: 048
     Dates: start: 2004, end: 2015
  13. LORAZEPAM. [Concomitant]
     Active Substance: LORAZEPAM

REACTIONS (9)
  - Renal failure [Unknown]
  - Acute kidney injury [Unknown]
  - Chronic kidney disease [Not Recovered/Not Resolved]
  - Gastrooesophageal reflux disease [Unknown]
  - Depression [Not Recovered/Not Resolved]
  - Nephropathy [Unknown]
  - Myocardial infarction [Not Recovered/Not Resolved]
  - Panic disorder [Not Recovered/Not Resolved]
  - Anxiety disorder [Not Recovered/Not Resolved]
